FAERS Safety Report 16062252 (Version 2)
Quarter: 2019Q2

REPORT INFORMATION
  Report Type: Spontaneous
  Country: FR (occurrence: FR)
  Receive Date: 20190312
  Receipt Date: 20190411
  Transmission Date: 20190711
  Serious: Yes (Other)
  Sender: FDA-Public Use
  Company Number: FR-BAYER-2019-045857

PATIENT
  Age: 40 Year
  Sex: Female

DRUGS (1)
  1. MIRENA [Suspect]
     Active Substance: LEVONORGESTREL
     Dosage: 20 MCG/24HR, CONT
     Route: 015
     Dates: start: 2013, end: 2014

REACTIONS (5)
  - Visual acuity reduced transiently [None]
  - Meningioma [Recovered/Resolved]
  - Meningioma [None]
  - Amenorrhoea [None]
  - Postoperative hypopituitarism [None]

NARRATIVE: CASE EVENT DATE: 201401
